FAERS Safety Report 17975456 (Version 2)
Quarter: 2020Q3

REPORT INFORMATION
  Report Type: Report from Study
  Country: US (occurrence: US)
  Receive Date: 20200702
  Receipt Date: 20200827
  Transmission Date: 20201103
  Serious: Yes (Other)
  Sender: FDA-Public Use
  Company Number: US-GILEAD-2020-0478428

PATIENT
  Age: 43 Year
  Sex: Male

DRUGS (17)
  1. VITAMIN D [VITAMIN D NOS] [Concomitant]
     Active Substance: VITAMIN D NOS
  2. AZTREONAM LYSINE [Suspect]
     Active Substance: AZTREONAM LYSINE
     Indication: CYSTIC FIBROSIS
     Dosage: 75 MG, TID, VIA ALTERA NEBULIZER, 28 DAYS ON MEDICATION, THEN 28 DAYS OFF
     Route: 055
  3. ZENPEP [Concomitant]
     Active Substance: PANCRELIPASE AMYLASE\PANCRELIPASE LIPASE\PANCRELIPASE PROTEASE
  4. NEXIUM I.V. [Concomitant]
     Active Substance: ESOMEPRAZOLE SODIUM
  5. VITAMINS NOS [Concomitant]
     Active Substance: VITAMINS
  6. PULMOZYME [Concomitant]
     Active Substance: DORNASE ALFA
  7. REMERON [Concomitant]
     Active Substance: MIRTAZAPINE
  8. HYPERSAL [Concomitant]
     Active Substance: SODIUM CHLORIDE
  9. DURAGESIC [Concomitant]
     Active Substance: FENTANYL
  10. TOBRAMYCIN. [Concomitant]
     Active Substance: TOBRAMYCIN
  11. HUMALOG [Concomitant]
     Active Substance: INSULIN LISPRO
  12. GABAPENTIN. [Concomitant]
     Active Substance: GABAPENTIN
  13. AZITHROMYCIN ANHYDROUS. [Concomitant]
     Active Substance: AZITHROMYCIN ANHYDROUS
  14. LEVEMIR [Concomitant]
     Active Substance: INSULIN DETEMIR
  15. VITAMIN A [RETINOL] [Concomitant]
     Active Substance: RETINOL
  16. PHENERGAN [Concomitant]
     Active Substance: PROMETHAZINE HYDROCHLORIDE
  17. LEVAQUIN [Concomitant]
     Active Substance: LEVOFLOXACIN

REACTIONS (2)
  - Cystic fibrosis [Unknown]
  - Cystic fibrosis [Unknown]

NARRATIVE: CASE EVENT DATE: 202006
